FAERS Safety Report 24704328 (Version 1)
Quarter: 2024Q4

REPORT INFORMATION
  Report Type: Spontaneous
  Country: US (occurrence: US)
  Receive Date: 20241206
  Receipt Date: 20241206
  Transmission Date: 20250115
  Serious: Yes (Other)
  Sender: HIKMA
  Company Number: HIKM2410990

PATIENT
  Sex: Female

DRUGS (1)
  1. PREDNISONE [Suspect]
     Active Substance: PREDNISONE
     Indication: Rheumatoid arthritis
     Dosage: UNKNOWN
     Route: 065

REACTIONS (8)
  - Sjogren^s syndrome [Unknown]
  - Interstitial lung disease [Unknown]
  - Bronchiectasis [Unknown]
  - Mycobacterium abscessus infection [Unknown]
  - Lung disorder [Unknown]
  - Tachycardia [Unknown]
  - Productive cough [Unknown]
  - Dyspnoea [Unknown]
